FAERS Safety Report 17869846 (Version 1)
Quarter: 2020Q2

REPORT INFORMATION
  Report Type: Spontaneous
  Country: US (occurrence: US)
  Receive Date: 20200608
  Receipt Date: 20200608
  Transmission Date: 20200714
  Serious: No
  Sender: FDA-Public Use
  Company Number: US-TARO-2019TAR00834

PATIENT
  Age: 5 Year
  Sex: Male
  Weight: 20.86 kg

DRUGS (4)
  1. FEVERALL JR. STRENGTH [Suspect]
     Active Substance: ACETAMINOPHEN
     Indication: PYREXIA
  2. FEVERALL JR. STRENGTH [Suspect]
     Active Substance: ACETAMINOPHEN
     Indication: PYREXIA
     Dosage: 325 MG, ONCE
     Dates: start: 20191210, end: 20191210
  3. FEVERALL CHILDRENS [Suspect]
     Active Substance: ACETAMINOPHEN
     Indication: PYREXIA
  4. FEVERALL CHILDRENS [Suspect]
     Active Substance: ACETAMINOPHEN
     Dosage: 120 MG, ONCE
     Dates: start: 20191210, end: 20191210

REACTIONS (3)
  - Overdose [Unknown]
  - Off label use [Unknown]
  - Drug ineffective [Unknown]

NARRATIVE: CASE EVENT DATE: 20191210
